FAERS Safety Report 7603844-8 (Version None)
Quarter: 2011Q3

REPORT INFORMATION
  Report Type: 
  Country: None (occurrence: None)
  Receive Date: 20110712
  Receipt Date: 20110707
  Transmission Date: 20111222
  Serious: Yes (Death, Hospitalization)
  Sender: FDA-Public Use
  Company Number: MX-ASTRAZENECA-2011SE09448

PATIENT
  Age: 60 Year
  Sex: Female

DRUGS (7)
  1. AMLODIPINE [Concomitant]
     Indication: HYPERTENSION
     Route: 048
     Dates: end: 20110201
  2. ISOSORBIDE DINITRATE [Concomitant]
     Route: 048
     Dates: end: 20110201
  3. TELMISARTAN [Concomitant]
     Indication: HYPERTENSION
     Route: 048
     Dates: end: 20110201
  4. METOPROLOL TARTRATE [Concomitant]
     Indication: HYPERTENSION
     Route: 048
     Dates: end: 20110201
  5. CRESTOR [Suspect]
     Indication: CATHETER PLACEMENT
     Route: 048
     Dates: start: 20110104, end: 20110201
  6. CLOPIDOGREL [Concomitant]
     Indication: ADJUVANT THERAPY
     Route: 048
     Dates: end: 20110201
  7. ASPIRIN [Concomitant]
     Indication: ANTIPLATELET THERAPY
     Route: 048
     Dates: end: 20110201

REACTIONS (5)
  - VENTRICULAR FIBRILLATION [None]
  - HYPOTONIA [None]
  - RHABDOMYOLYSIS [None]
  - HYPOTENSION [None]
  - DYSPNOEA [None]
